FAERS Safety Report 8057534-0 (Version None)
Quarter: 2012Q1

REPORT INFORMATION
  Report Type: 
  Country: None (occurrence: None)
  Receive Date: 20120119
  Receipt Date: 20120110
  Transmission Date: 20120608
  Serious: Yes (Hospitalization)
  Sender: FDA-Public Use
  Company Number: US-ASTRAZENECA-2011SE21311

PATIENT
  Age: 61 Year
  Sex: Female

DRUGS (2)
  1. NEXIUM [Suspect]
     Route: 048
  2. CRESTOR [Suspect]
     Route: 048

REACTIONS (7)
  - ADVERSE EVENT [None]
  - HEART RATE INCREASED [None]
  - ABDOMINAL PAIN UPPER [None]
  - GASTROOESOPHAGEAL REFLUX DISEASE [None]
  - MALAISE [None]
  - ABDOMINAL DISCOMFORT [None]
  - DRUG DOSE OMISSION [None]
